FAERS Safety Report 9845260 (Version 1)
Quarter: 2014Q1

REPORT INFORMATION
  Report Type: Spontaneous
  Country: US (occurrence: None)
  Receive Date: 20140122
  Receipt Date: 20140122
  Transmission Date: 20141002
  Serious: Yes (Hospitalization)
  Sender: FDA-Public Use
  Company Number: UTC-043330

PATIENT
  Age: 54 Year
  Sex: Female

DRUGS (4)
  1. REMODULIN [Suspect]
     Indication: PULMONARY ARTERIAL HYPERTENSION
     Dosage: (0.077 UG/KG, 1 IN 1 MIN)
     Route: 041
     Dates: start: 20091014
  2. ADCIRCA (TADALAFIL) (UNKNOWN) [Concomitant]
  3. TRACLEER (BOSENTAN) (UNKNOWN) [Concomitant]
  4. WARFARIN (UNKNOWN) [Concomitant]

REACTIONS (6)
  - Heart rate increased [None]
  - Nausea [None]
  - Device related infection [None]
  - Headache [None]
  - Hypotension [None]
  - Overdose [None]
